FAERS Safety Report 14912195 (Version 2)
Quarter: 2018Q4

REPORT INFORMATION
  Report Type: Spontaneous
  Country: US (occurrence: US)
  Receive Date: 20180518
  Receipt Date: 20181011
  Transmission Date: 20190204
  Serious: Yes (Other)
  Sender: FDA-Public Use
  Company Number: US-USPHARMA LIMITED-2018-US-000025

PATIENT
  Age: 62 Year
  Sex: Female

DRUGS (2)
  1. NITROGLYCERIN. [Suspect]
     Active Substance: NITROGLYCERIN
     Indication: ACUTE CORONARY SYNDROME
     Route: 065
  2. MORPHINE [Suspect]
     Active Substance: MORPHINE
     Indication: ACUTE CORONARY SYNDROME
     Route: 065

REACTIONS (1)
  - Drug ineffective [Unknown]
